FAERS Safety Report 6560001-4 (Version None)
Quarter: 2010Q1

REPORT INFORMATION
  Report Type: 
  Country: None (occurrence: None)
  Receive Date: 20100129
  Receipt Date: 20090914
  Transmission Date: 20100710
  Serious: Yes (Hospitalization)
  Sender: FDA-Public Use
  Company Number: US-ABBOTT-09P-163-0597681-00

PATIENT
  Age: 22 Year
  Sex: Female
  Weight: 60.836 kg

DRUGS (7)
  1. HUMIRA [Suspect]
     Indication: CROHN'S DISEASE
     Route: 058
     Dates: start: 20080501
  2. HUMIRA [Suspect]
     Route: 058
     Dates: start: 20081201
  3. MULTI-VITAMIN [Concomitant]
     Indication: VITAMIN SUPPLEMENTATION
  4. PROBIOTIC [Concomitant]
     Indication: DRUG USE FOR UNKNOWN INDICATION
  5. HYOMAX-SL [Concomitant]
     Indication: IRRITABLE BOWEL SYNDROME
  6. ZOFRAN [Concomitant]
     Indication: NAUSEA
  7. FLAGYL [Concomitant]
     Indication: DRUG USE FOR UNKNOWN INDICATION

REACTIONS (5)
  - ABDOMINAL PAIN [None]
  - CROHN'S DISEASE [None]
  - DRUG EFFECT DECREASED [None]
  - NAUSEA [None]
  - POSTOPERATIVE WOUND INFECTION [None]
